FAERS Safety Report 10101115 (Version 1)
Quarter: 2014Q2

REPORT INFORMATION
  Report Type: Spontaneous
  Country: CH (occurrence: CH)
  Receive Date: 20140424
  Receipt Date: 20140424
  Transmission Date: 20141212
  Serious: Yes (Hospitalization, Other)
  Sender: FDA-Public Use
  Company Number: CH-ASTRAZENECA-2014SE26837

PATIENT
  Age: 61 Year
  Sex: Female

DRUGS (13)
  1. SEROQUEL [Suspect]
     Route: 048
     Dates: start: 20060206, end: 20060726
  2. SEROQUEL [Suspect]
     Route: 048
     Dates: start: 20060727, end: 20060801
  3. SEROQUEL [Suspect]
     Route: 048
     Dates: start: 20060802, end: 20060803
  4. TRILEPTAL [Suspect]
     Route: 048
     Dates: start: 20060504, end: 20060506
  5. TRILEPTAL [Suspect]
     Route: 048
     Dates: start: 20060507, end: 20060508
  6. TRILEPTAL [Suspect]
     Route: 048
     Dates: start: 20060509, end: 20060529
  7. COVERSUM [Suspect]
     Route: 048
  8. PANTOZOL [Suspect]
     Route: 048
  9. LEVEMIR [Concomitant]
  10. NOVORAPID [Concomitant]
  11. LIVIAL [Concomitant]
  12. PLAVIX [Concomitant]
     Route: 048
  13. ISOPTIN [Concomitant]
     Route: 048

REACTIONS (5)
  - Blood glucose abnormal [Unknown]
  - Hyponatraemia [Recovered/Resolved]
  - Blood phosphorus decreased [Unknown]
  - Base excess increased [Unknown]
  - Gamma-glutamyltransferase increased [Unknown]
